FAERS Safety Report 8713819 (Version 3)
Quarter: 2012Q4

REPORT INFORMATION
  Report Type: 
  Country: JP (occurrence: JP)
  Receive Date: 20120808
  Receipt Date: 20120906
  Transmission Date: 20130627
  Serious: Yes (Hospitalization)
  Sender: FDA-Public Use
  Company Number: JP-ALLERGAN-1210798US

PATIENT
  Age: 3 Year
  Sex: Female

DRUGS (4)
  1. BOTOX [Suspect]
     Indication: CEREBRAL PALSY
     Dosage: 160 UNITS, single
     Route: 030
     Dates: start: 20120801, end: 20120801
  2. RAVONAL [Concomitant]
     Indication: SEDATION
  3. DIPRIVAN [Concomitant]
     Indication: SEDATION
     Dosage: UNK UNK, single
  4. PROPOFOL [Concomitant]
     Indication: SEDATION

REACTIONS (3)
  - Thrombocytopenia [Recovered/Resolved]
  - Increased tendency to bruise [Recovered/Resolved]
  - Haemorrhage subcutaneous [Unknown]
